FAERS Safety Report 7222583-9 (Version None)
Quarter: 2011Q1

REPORT INFORMATION
  Report Type: 
  Country: None (occurrence: None)
  Receive Date: 20110106
  Receipt Date: 20110106
  Transmission Date: 20110831
  Serious: Yes (Other)
  Sender: FDA-Public Use
  Company Number: None

PATIENT
  Age: 48 Year
  Sex: Female
  Weight: 65.318 kg

DRUGS (1)
  1. THEOPHYLLINE [Suspect]
     Indication: ASTHMA
     Dosage: 1 TABLET 3XDAILY
     Dates: start: 20101001, end: 20101231

REACTIONS (3)
  - WRONG DRUG ADMINISTERED [None]
  - DYSPNOEA [None]
  - TREMOR [None]
